FAERS Safety Report 18265593 (Version 2)
Quarter: 2022Q1

REPORT INFORMATION
  Report Type: Spontaneous
  Country: FR (occurrence: FR)
  Receive Date: 20200914
  Receipt Date: 20220311
  Transmission Date: 20220424
  Serious: Yes (Other)
  Sender: FDA-Public Use
  Company Number: FR-GILEAD-2020-0494811

PATIENT
  Age: 72 Year
  Sex: Female

DRUGS (6)
  1. AXICABTAGENE CILOLEUCEL [Suspect]
     Active Substance: AXICABTAGENE CILOLEUCEL
     Indication: Follicular lymphoma
     Dosage: UNK
     Route: 065
     Dates: start: 20190718, end: 20190718
  2. IFOSFAMIDE [Concomitant]
     Active Substance: IFOSFAMIDE
     Indication: Follicular lymphoma
  3. FLUDARABINE [Concomitant]
     Active Substance: FLUDARABINE PHOSPHATE
     Indication: Bone marrow conditioning regimen
     Dosage: 30 MG/M2
  4. CYCLOPHOSPHAMIDE [Concomitant]
     Active Substance: CYCLOPHOSPHAMIDE
     Indication: Bone marrow conditioning regimen
     Dosage: 500 MG/M2
  5. ETOPOSIDE [Concomitant]
     Active Substance: ETOPOSIDE
     Indication: Follicular lymphoma
     Dosage: 300 MG/M2; 1 COURSE
  6. IFOSFAMIDE [Concomitant]
     Active Substance: IFOSFAMIDE
     Indication: Follicular lymphoma
     Dosage: UNK; 1.5 G/M2; 1 COURSE

REACTIONS (14)
  - Spinal claudication [Unknown]
  - Major depression [Unknown]
  - Myelopathy [Unknown]
  - Immune effector cell-associated neurotoxicity syndrome [Recovered/Resolved]
  - Deep vein thrombosis [Unknown]
  - Cytokine release syndrome [Recovered/Resolved]
  - Urinary tract infection [Unknown]
  - Cytopenia [Unknown]
  - Gait disturbance [Unknown]
  - Ataxia [Not Recovered/Not Resolved]
  - Muscle disorder [Not Recovered/Not Resolved]
  - Neuropathy peripheral [Not Recovered/Not Resolved]
  - Influenza [Recovered/Resolved]
  - Hyperthermia [Unknown]

NARRATIVE: CASE EVENT DATE: 20190720
